FAERS Safety Report 16712524 (Version 2)
Quarter: 2019Q3

REPORT INFORMATION
  Report Type: Spontaneous
  Country: IT (occurrence: IT)
  Receive Date: 20190816
  Receipt Date: 20190926
  Transmission Date: 20191004
  Serious: Yes (Hospitalization)
  Sender: FDA-Public Use
  Company Number: IT-VERTEX PHARMACEUTICALS-2019-007730

PATIENT

DRUGS (22)
  1. ORKAMBI [Suspect]
     Active Substance: IVACAFTOR\LUMACAFTOR
     Dosage: 2 DOSAGE FORM, BID
     Route: 048
     Dates: start: 201608, end: 20181215
  2. HYANEB [Concomitant]
  3. DELTACORTENE [Concomitant]
     Active Substance: PREDNISONE
     Dosage: 5 MG, QD
  4. MEPRAL [OMEPRAZOLE SODIUM] [Concomitant]
     Dosage: 20 MG, QD
     Route: 048
  5. DEURSIL [Concomitant]
     Active Substance: URSODIOL
     Dosage: 1 DOSAGE FORM, QD
     Route: 048
  6. NUTRIDRINK [Concomitant]
     Active Substance: CARBOHYDRATES\FATTY ACIDS\MINERALS\PROTEIN\VITAMINS
  7. COLFINAIR [Concomitant]
     Dosage: TWICE A DAY EVERY OTHER MONTH
  8. ENTEROLACTIS PLUS [Concomitant]
     Dosage: 1 DOSAGE FORM, QD
     Route: 048
  9. EFEXOR [Concomitant]
     Active Substance: VENLAFAXINE HYDROCHLORIDE
     Dosage: 75 MG: 1 CAPSULE IN MORNING
  10. ORKAMBI [Suspect]
     Active Substance: IVACAFTOR\LUMACAFTOR
     Indication: CYSTIC FIBROSIS
     Dosage: 1 DOSAGE FORM, BID
     Route: 048
     Dates: start: 20160729, end: 201608
  11. LANTUS [Concomitant]
     Active Substance: INSULIN GLARGINE
     Dosage: 7 U IN EVENING AT 11 PM
  12. QUINSAIR [Concomitant]
     Dosage: TWICE A DAY IN ALTERNATE MONTHS
  13. RINOFLUIMUCIL [ACETYLCYSTEINE] [Concomitant]
  14. PLAQUENIL [HYDROXYCHLOROQUINE PHOSPHATE] [Concomitant]
     Active Substance: HYDROXYCHLOROQUINE DIPHOSPHATE
     Dosage: 1 DOSAGE FORM, QD
     Route: 048
  15. NOVORAPID [Concomitant]
     Active Substance: INSULIN ASPART
     Dosage: 6-8IU BREAKFAST,12-14IU LUNCH,14-16IU DINNER
  16. PREDNISONE. [Concomitant]
     Active Substance: PREDNISONE
  17. COLCHICINE. [Concomitant]
     Active Substance: COLCHICINE
  18. PULMOZYME [Concomitant]
     Active Substance: DORNASE ALFA
  19. FOSTER [PIROXICAM] [Concomitant]
     Dosage: 2 PUFF TWICE A DAY
  20. FERROGRAD [FERROUS SULFATE] [Concomitant]
     Active Substance: FERROUS SULFATE
     Dosage: 1 DOSAGE FORM
     Route: 048
  21. CREON [Concomitant]
     Active Substance: PANCRELIPASE AMYLASE\PANCRELIPASE LIPASE\PANCRELIPASE PROTEASE
  22. MOVICOL PLAIN [Concomitant]
     Active Substance: POLYETHYLENE GLYCOL 3350\POTASSIUM CHLORIDE\SODIUM BICARBONATE\SODIUM CHLORIDE

REACTIONS (5)
  - Erythema [Unknown]
  - Pruritus [Unknown]
  - Chest discomfort [Not Recovered/Not Resolved]
  - Drug ineffective [Unknown]
  - Dyspnoea exertional [Not Recovered/Not Resolved]

NARRATIVE: CASE EVENT DATE: 2016
